FAERS Safety Report 6917454-9 (Version None)
Quarter: 2010Q4

REPORT INFORMATION
  Report Type: 
  Country: None (occurrence: None)
  Receive Date: 20100810
  Receipt Date: 20100730
  Transmission Date: 20110411
  Serious: Yes (Other)
  Sender: FDA-Public Use
  Company Number: PHHY2010BR19700

PATIENT
  Sex: Female

DRUGS (5)
  1. EXFORGE HCT [Suspect]
     Indication: HYPERTENSION
     Dosage: 160/12.5/5 MG 1 TIME DAILY
     Route: 048
     Dates: start: 20100323, end: 20100330
  2. METFORMIN [Concomitant]
     Indication: TYPE 2 DIABETES MELLITUS
     Dosage: 02 TABLETS DAILY, ON MORNING AND AT NIGHT
     Route: 048
  3. SYNTHROID [Concomitant]
     Indication: HYPERTHYROIDISM
     Dosage: 01 TABLET DAILY, FROM 02 MONTHS AGO
     Route: 048
  4. SIMVASTATIN [Concomitant]
     Indication: BLOOD CHOLESTEROL
     Dosage: 01 TABLET DAILY, FOR 04 YEARS
     Route: 048
  5. CLONAZEPAM [Concomitant]
     Indication: ANXIETY
     Dosage: 01 TABLET DAILY, FOR 04 YEARS
     Route: 048

REACTIONS (2)
  - BLOOD PRESSURE DECREASED [None]
  - PALPITATIONS [None]
